FAERS Safety Report 5132846-9 (Version None)
Quarter: 2006Q4

REPORT INFORMATION
  Report Type: 
  Country: None (occurrence: None)
  Receive Date: 20061023
  Receipt Date: 20061013
  Transmission Date: 20070319
  Serious: Yes (Life-Threatening, Hospitalization)
  Sender: FDA-Public Use
  Company Number: PHBS2006ES16057

PATIENT
  Age: 53 Year
  Sex: Female

DRUGS (3)
  1. GLEEVEC [Suspect]
     Indication: CHRONIC MYELOID LEUKAEMIA
     Dosage: 300 MG/D
     Route: 048
     Dates: start: 19980110
  2. GLEEVEC [Suspect]
     Dosage: 400 MG/D
     Route: 048
  3. GLEEVEC [Suspect]
     Dosage: 300 MG/D
     Route: 048

REACTIONS (6)
  - BONE MARROW DISORDER [None]
  - BONE PAIN [None]
  - DRUG INTOLERANCE [None]
  - GASTROINTESTINAL DISORDER [None]
  - MYALGIA [None]
  - NAUSEA [None]
